FAERS Safety Report 18636816 (Version 1)
Quarter: 2020Q4

REPORT INFORMATION
  Report Type: Spontaneous
  Country: US (occurrence: US)
  Receive Date: 20201218
  Receipt Date: 20201218
  Transmission Date: 20210114
  Serious: Yes (Other)
  Sender: FDA-Public Use
  Company Number: US-ASTRAZENECA-2020SF66277

PATIENT

DRUGS (10)
  1. TAMSULOSIN [Concomitant]
     Active Substance: TAMSULOSIN
     Indication: PROSTATOMEGALY
     Route: 048
     Dates: start: 2000
  2. METOLAZONE. [Concomitant]
     Active Substance: METOLAZONE
     Indication: DIURETIC THERAPY
     Dosage: TAKES 5 MG IF HEART FAILURE
     Dates: start: 201903
  3. FINASTERIDE. [Concomitant]
     Active Substance: FINASTERIDE
     Indication: PROSTATOMEGALY
     Route: 048
     Dates: start: 2000
  4. SYMBICORT [Suspect]
     Active Substance: BUDESONIDE\FORMOTEROL FUMARATE DIHYDRATE
     Indication: DYSPNOEA
     Dosage: 160/4.5, 2 PUFFS TWICE DAILY
     Route: 055
     Dates: start: 2015
  5. POTASSIUM CHLORIDE. [Concomitant]
     Active Substance: POTASSIUM CHLORIDE
     Dosage: DOSING VARIES, DOSING DEPENDS ON WEIGHT AND HOW MUCH DIURETIC HE TAKES. IF HE TAKES 200 MG OF THE...
     Route: 048
  6. TORSEMIDE. [Concomitant]
     Active Substance: TORSEMIDE
     Indication: DIURETIC THERAPY
     Dosage: 100 MG OR 200 MG DAILY VARIES BY WEIGHT
     Dates: start: 201903
  7. ELIQUIS [Concomitant]
     Active Substance: APIXABAN
     Indication: BLOOD VISCOSITY ABNORMAL
     Route: 048
  8. OMEPRAZOLE. [Concomitant]
     Active Substance: OMEPRAZOLE
     Indication: GASTROOESOPHAGEAL REFLUX DISEASE
     Route: 048
     Dates: start: 1995
  9. METOPROLOL. [Suspect]
     Active Substance: METOPROLOL
     Indication: BLOOD PRESSURE MEASUREMENT
     Route: 048
     Dates: start: 1995
  10. PRAMIPEXOLE. [Concomitant]
     Active Substance: PRAMIPEXOLE
     Indication: RESTLESS LEGS SYNDROME
     Dosage: 0.125 MG 4 TIMES PER DAY, EVENRY 7 HOURS
     Dates: start: 2010

REACTIONS (1)
  - Cardiac amyloidosis [Not Recovered/Not Resolved]

NARRATIVE: CASE EVENT DATE: 201904
